FAERS Safety Report 5324381-X (Version None)
Quarter: 2007Q2

REPORT INFORMATION
  Report Type: 
  Country: None (occurrence: None)
  Receive Date: 20070509
  Receipt Date: 20070424
  Transmission Date: 20071010
  Serious: Yes (Life-Threatening, Hospitalization)
  Sender: FDA-Public Use
  Company Number: S07-FRA-01847-01

PATIENT
  Age: 73 Year
  Sex: Female

DRUGS (6)
  1. EBIXA (MEMANTINE HYDROCHLORIDE) [Suspect]
     Indication: DEMENTIA ALZHEIMER'S TYPE
     Dosage: 20 MG QD PO
     Route: 048
     Dates: start: 20061101, end: 20070222
  2. GALANTAMINE HYDROBROMIDE [Suspect]
     Indication: DEMENTIA ALZHEIMER'S TYPE
     Dosage: 1 QD
     Dates: start: 20060301, end: 20070222
  3. GALANTAMINE HYDROBROMIDE [Suspect]
     Indication: DEMENTIA ALZHEIMER'S TYPE
     Dosage: 1 QD
     Dates: start: 20070101
  4. MIRTAZAPINE [Concomitant]
  5. LORAZEPAM [Concomitant]
  6. IMOVANE (ZOPICLONE) [Concomitant]

REACTIONS (4)
  - CHOLELITHIASIS [None]
  - CIRCULATORY COLLAPSE [None]
  - PANCREATITIS HAEMORRHAGIC [None]
  - PANCREATITIS NECROTISING [None]
